FAERS Safety Report 18069490 (Version 1)
Quarter: 2020Q3

REPORT INFORMATION
  Report Type: Spontaneous
  Country: CN (occurrence: CN)
  Receive Date: 20200726
  Receipt Date: 20200726
  Transmission Date: 20201103
  Serious: Yes (Life-Threatening, Hospitalization)
  Sender: FDA-Public Use
  Company Number: NVSC2020CN206693

PATIENT
  Age: 72 Year
  Sex: Female

DRUGS (4)
  1. SODIUM BICARBONATE. [Concomitant]
     Active Substance: SODIUM BICARBONATE
     Indication: PRODUCT USED FOR UNKNOWN INDICATION
     Dosage: UNK 250 ML OF 5 %
     Route: 065
  2. NOREPINEPHRINE. [Concomitant]
     Active Substance: NOREPINEPHRINE
     Indication: PRODUCT USED FOR UNKNOWN INDICATION
     Dosage: 2.5 UG/KG/MIN
     Route: 065
  3. DOBUTAMINE [Concomitant]
     Active Substance: DOBUTAMINE HYDROCHLORIDE
     Indication: PRODUCT USED FOR UNKNOWN INDICATION
     Dosage: 1.0 1.0MG/KG/MIN
     Route: 065
  4. METFORMIN [Suspect]
     Active Substance: METFORMIN HYDROCHLORIDE
     Indication: TYPE 2 DIABETES MELLITUS
     Dosage: 20 MG, QD
     Route: 048

REACTIONS (10)
  - Nausea [Unknown]
  - Tachycardia [Unknown]
  - Hypotension [Unknown]
  - Peripheral coldness [Unknown]
  - Vomiting [Unknown]
  - Gastrointestinal disorder [Unknown]
  - Lactic acidosis [Unknown]
  - Mental status changes [Unknown]
  - Respiration abnormal [Unknown]
  - Asthenia [Unknown]
